FAERS Safety Report 11582938 (Version 1)
Quarter: 2015Q4

REPORT INFORMATION
  Report Type: Spontaneous
  Country: US (occurrence: US)
  Receive Date: 20151001
  Receipt Date: 20151001
  Transmission Date: 20160304
  Serious: No
  Sender: FDA-Public Use
  Company Number: US-ROCHE-701965

PATIENT
  Sex: Female

DRUGS (2)
  1. PEGASYS [Suspect]
     Active Substance: PEGINTERFERON ALFA-2A
     Indication: HEPATITIS C
     Dosage: FORM: PRE-FILLED SYRINGE
     Route: 058
     Dates: start: 20091102, end: 20100315
  2. COPEGUS [Suspect]
     Active Substance: RIBAVIRIN
     Indication: HEPATITIS C
     Dosage: DIVIDED DOSES
     Route: 048
     Dates: start: 20091102, end: 20100315

REACTIONS (8)
  - Parosmia [Unknown]
  - Productive cough [Unknown]
  - Pyrexia [Unknown]
  - Alopecia [Unknown]
  - Hepatic enzyme increased [Unknown]
  - Fatigue [Unknown]
  - Dyspnoea [Unknown]
  - Headache [Unknown]
